FAERS Safety Report 9770345 (Version 1)
Quarter: 2013Q4

REPORT INFORMATION
  Report Type: Spontaneous
  Country: US (occurrence: US)
  Receive Date: 20131218
  Receipt Date: 20131218
  Transmission Date: 20140711
  Serious: Yes (Other)
  Sender: FDA-Public Use
  Company Number: US-B.I. PHARMACEUTICALS,INC./RIDGEFIELD-2013-BI-41307BP

PATIENT
  Sex: Male

DRUGS (2)
  1. FLOMAX CAPSULES [Suspect]
     Indication: PROSTATOMEGALY
  2. VIAGRA [Concomitant]
     Dosage: DOSE PER APPLICATION AND DAILY DOSE: 12 MG OF VIAGRA BY SPLITTING 100MG TAB INTO EIGHT PARTS

REACTIONS (5)
  - Heart rate increased [Unknown]
  - Anxiety [Unknown]
  - Poor quality sleep [Unknown]
  - Insomnia [Unknown]
  - Terminal insomnia [Unknown]
